FAERS Safety Report 8261517-5 (Version None)
Quarter: 2012Q2

REPORT INFORMATION
  Report Type: 
  Country: None (occurrence: None)
  Receive Date: 20120405
  Receipt Date: 20120327
  Transmission Date: 20120825
  Serious: Yes (Hospitalization)
  Sender: FDA-Public Use
  Company Number: GB-NOVOPROD-334186

PATIENT
  Age: 64 Year
  Sex: Female
  Weight: 73.5 kg

DRUGS (1)
  1. VICTOZA [Suspect]
     Indication: TYPE 2 DIABETES MELLITUS
     Dosage: 0.6 MG, QD
     Dates: start: 20100820, end: 20100824

REACTIONS (2)
  - DIABETIC KETOACIDOSIS [None]
  - PANCREATITIS [None]
